FAERS Safety Report 12400148 (Version 1)
Quarter: 2016Q2

REPORT INFORMATION
  Report Type: Report from Study
  Country: DE (occurrence: DE)
  Receive Date: 20160524
  Receipt Date: 20160524
  Transmission Date: 20160815
  Serious: Yes (Other)
  Sender: FDA-Public Use
  Company Number: DE-GILEAD-2016-0214852

PATIENT
  Age: 45 Year
  Sex: Female

DRUGS (1)
  1. IDELALISIB [Suspect]
     Active Substance: IDELALISIB
     Indication: B-CELL LYMPHOMA REFRACTORY
     Dosage: UNK
     Route: 048
     Dates: start: 20150928

REACTIONS (4)
  - Diarrhoea [Unknown]
  - Acute graft versus host disease in intestine [Unknown]
  - Vomiting [Unknown]
  - Nausea [Unknown]
